FAERS Safety Report 13718569 (Version 2)
Quarter: 2017Q3

REPORT INFORMATION
  Report Type: Spontaneous
  Country: FR (occurrence: FR)
  Receive Date: 20170705
  Receipt Date: 20170918
  Transmission Date: 20171127
  Serious: Yes (Hospitalization)
  Sender: FDA-Public Use
  Company Number: FR-ASTRAZENECA-2017SE69060

PATIENT
  Age: 32005 Day
  Sex: Female

DRUGS (10)
  1. LEVOTHYROX [Suspect]
     Active Substance: LEVOTHYROXINE
     Route: 065
  2. INEXIUM [Suspect]
     Active Substance: ESOMEPRAZOLE
     Route: 048
  3. KARDEGIC [Suspect]
     Active Substance: ASPIRIN LYSINE
     Route: 048
  4. LASILIX SPECIAL [Suspect]
     Active Substance: FUROSEMIDE
     Route: 065
  5. UVEDOSE [Suspect]
     Active Substance: CHOLECALCIFEROL
     Route: 065
  6. PARACETAMOL [Suspect]
     Active Substance: ACETAMINOPHEN
     Route: 065
  7. CALCIUM ACETATE. [Suspect]
     Active Substance: CALCIUM ACETATE
     Indication: HYPERPHOSPHATAEMIA
     Route: 065
     Dates: start: 201704
  8. NOVONORM [Suspect]
     Active Substance: REPAGLINIDE
     Route: 065
  9. SEROPLEX [Suspect]
     Active Substance: ESCITALOPRAM OXALATE
     Route: 065
  10. GALVUS [Suspect]
     Active Substance: VILDAGLIPTIN
     Route: 065

REACTIONS (2)
  - Dermatitis bullous [Recovering/Resolving]
  - Pemphigoid [Recovering/Resolving]

NARRATIVE: CASE EVENT DATE: 20170509
